FAERS Safety Report 10421333 (Version 1)
Quarter: 2014Q3

REPORT INFORMATION
  Report Type: Spontaneous
  Country: US (occurrence: US)
  Receive Date: 20140831
  Receipt Date: 20140831
  Transmission Date: 20150326
  Serious: Yes (Death)
  Sender: FDA-Public Use
  Company Number: US-ROCHE-1456680

PATIENT
  Sex: Female
  Weight: 64.47 kg

DRUGS (2)
  1. AVASTIN [Suspect]
     Active Substance: BEVACIZUMAB
     Indication: COLON CANCER
     Dosage: 16 ML
     Route: 042
     Dates: start: 20130926
  2. NEULASTA [Concomitant]
     Active Substance: PEGFILGRASTIM
     Indication: COLON CANCER
     Dosage: 0.6ML EVERY 14 DAYS AFTER CHEMO
     Route: 058
     Dates: start: 20130926

REACTIONS (1)
  - Death [Fatal]
